FAERS Safety Report 9854138 (Version 3)
Quarter: 2014Q1

REPORT INFORMATION
  Report Type: Spontaneous
  Country: GB (occurrence: GB)
  Receive Date: 20140129
  Receipt Date: 20140328
  Transmission Date: 20141002
  Serious: Yes (Other)
  Sender: FDA-Public Use
  Company Number: GB-AMGEN-GBRSP2014005276

PATIENT
  Age: 38 Year
  Sex: Female
  Weight: 125 kg

DRUGS (4)
  1. NPLATE [Suspect]
     Indication: IMMUNE THROMBOCYTOPENIC PURPURA
     Dosage: 125-375 MCG, QWK
     Route: 058
     Dates: start: 20120620, end: 20131231
  2. NPLATE [Suspect]
     Dosage: 125-375 MCG, QWK
     Route: 058
     Dates: start: 20120620, end: 20131231
  3. NPLATE [Suspect]
     Dosage: 125-375 MCG, QWK
     Route: 058
     Dates: start: 20120620, end: 20131231
  4. RIVAROXABAN [Concomitant]
     Indication: EMBOLISM
     Dosage: 20 MG, QD
     Route: 048
     Dates: start: 20130301

REACTIONS (2)
  - Therapeutic response decreased [Recovered/Resolved]
  - Haemorrhage [Recovering/Resolving]
